FAERS Safety Report 21279678 (Version 4)
Quarter: 2023Q2

REPORT INFORMATION
  Report Type: Spontaneous
  Country: US (occurrence: US)
  Receive Date: 20220901
  Receipt Date: 20230406
  Transmission Date: 20230721
  Serious: No
  Sender: FDA-Public Use
  Company Number: US-BIOGEN-2022BI01151648

PATIENT
  Sex: Male

DRUGS (10)
  1. VUMERITY [Suspect]
     Active Substance: DIROXIMEL FUMARATE
     Indication: Multiple sclerosis
     Route: 050
     Dates: start: 20210225, end: 20220705
  2. VUMERITY [Suspect]
     Active Substance: DIROXIMEL FUMARATE
     Route: 050
     Dates: start: 20200610, end: 20200903
  3. VUMERITY [Suspect]
     Active Substance: DIROXIMEL FUMARATE
     Route: 050
     Dates: start: 20220906
  4. MYRBETRIQ [Concomitant]
     Active Substance: MIRABEGRON
     Route: 050
  5. HIPREX [Concomitant]
     Active Substance: METHENAMINE HIPPURATE
     Route: 050
  6. HIPREX [Concomitant]
     Active Substance: METHENAMINE HIPPURATE
     Route: 050
  7. LASIX [Concomitant]
     Active Substance: FUROSEMIDE
     Route: 050
  8. MIRAPEX [Concomitant]
     Active Substance: PRAMIPEXOLE DIHYDROCHLORIDE
     Route: 050
  9. DIAZEPAM [Concomitant]
     Active Substance: DIAZEPAM
     Route: 050
  10. OXYCONTIN [Concomitant]
     Active Substance: OXYCODONE HYDROCHLORIDE
     Route: 050

REACTIONS (2)
  - Drug ineffective [Not Recovered/Not Resolved]
  - Multiple sclerosis [Not Recovered/Not Resolved]
